FAERS Safety Report 17939883 (Version 1)
Quarter: 2020Q2

REPORT INFORMATION
  Report Type: Spontaneous
  Country: DE (occurrence: DE)
  Receive Date: 20200624
  Receipt Date: 20200624
  Transmission Date: 20200714
  Serious: Yes (Other)
  Sender: FDA-Public Use
  Company Number: DE-ALLERGAN-2024184US

PATIENT
  Sex: Male
  Weight: 2.48 kg

DRUGS (1)
  1. MESALAZINE UNK [Suspect]
     Active Substance: MESALAMINE
     Indication: EXPOSURE DURING PREGNANCY
     Dosage: 6000 [MG/D (BIS 2000 MG/D) ]/ UNTIL GW 12: 4G/D RECTALLY + 2 G/D ORALLY. AFTERWARDS 2 G/D RECTALLY
     Route: 064
     Dates: start: 20190119, end: 20191017

REACTIONS (3)
  - Small for dates baby [Recovering/Resolving]
  - Foetal exposure during pregnancy [Unknown]
  - Hydrocele [Unknown]

NARRATIVE: CASE EVENT DATE: 20191017
